FAERS Safety Report 5369111-0 (Version None)
Quarter: 2007Q2

REPORT INFORMATION
  Report Type: 
  Country: None (occurrence: None)
  Receive Date: 20070625
  Receipt Date: 20070131
  Transmission Date: 20071010
  Serious: No
  Sender: FDA-Public Use
  Company Number: US-ASTRAZENECA-2007UW02021

PATIENT
  Age: 74 Year
  Sex: Female
  Weight: 70.8 kg

DRUGS (3)
  1. CRESTOR [Suspect]
     Indication: BLOOD CHOLESTEROL INCREASED
     Route: 048
     Dates: start: 20070117
  2. ACIPHEX [Concomitant]
  3. HYZAAR [Concomitant]

REACTIONS (2)
  - ABDOMINAL PAIN [None]
  - MEDICATION RESIDUE [None]
